FAERS Safety Report 24964706 (Version 1)
Quarter: 2025Q1

REPORT INFORMATION
  Report Type: Spontaneous
  Country: CA (occurrence: CA)
  Receive Date: 20250213
  Receipt Date: 20250213
  Transmission Date: 20250409
  Serious: Yes (Other)
  Sender: CSL BEHRING
  Company Number: CA-BEH-2025194590

PATIENT
  Age: 65 Year
  Sex: Female

DRUGS (1)
  1. HUMAN IMMUNOGLOBULIN G [Suspect]
     Active Substance: HUMAN IMMUNOGLOBULIN G
     Indication: Product used for unknown indication
     Dosage: 12 G, QW(1 EVERY 1 WEEKS)
     Route: 058

REACTIONS (9)
  - Lung neoplasm malignant [Unknown]
  - Expired product administered [Unknown]
  - Insomnia [Unknown]
  - Liquid product physical issue [Unknown]
  - Malaise [Unknown]
  - Product dose omission issue [Unknown]
  - Somnolence [Unknown]
  - Tooth extraction [Unknown]
  - Off label use [Unknown]
